FAERS Safety Report 7792139-8 (Version None)
Quarter: 2011Q4

REPORT INFORMATION
  Report Type: 
  Country: None (occurrence: None)
  Receive Date: 20111003
  Receipt Date: 20110930
  Transmission Date: 20120403
  Serious: Yes (Death, Hospitalization)
  Sender: FDA-Public Use
  Company Number: ES-ROCHE-801310

PATIENT
  Age: 92 Year
  Sex: Female

DRUGS (1)
  1. MABTHERA [Suspect]
     Indication: SCLERODERMA
     Dosage: FORM: INFUSION
     Route: 042

REACTIONS (4)
  - NEUTROPENIA [None]
  - DEATH [None]
  - LEUKOPENIA [None]
  - OESOPHAGEAL CANDIDIASIS [None]
